FAERS Safety Report 6676343-8 (Version None)
Quarter: 2010Q2

REPORT INFORMATION
  Report Type: 
  Country: None (occurrence: None)
  Receive Date: 20100412
  Receipt Date: 20100331
  Transmission Date: 20101027
  Serious: Yes (Hospitalization)
  Sender: FDA-Public Use
  Company Number: FR-PFIZER INC-2010041093

PATIENT
  Age: 39 Year
  Sex: Male

DRUGS (9)
  1. ADRIBLASTINE [Suspect]
     Indication: LIPOSARCOMA
     Dosage: 60 MG/M2, CYCLIC
     Route: 041
     Dates: start: 20091221, end: 20100111
  2. HOLOXAN [Suspect]
     Indication: LIPOSARCOMA
     Dosage: 3000 MG/M2, CYCLIC
     Route: 041
     Dates: start: 20091221, end: 20100113
  3. UROMITEXAN [Suspect]
     Indication: LIPOSARCOMA
     Dosage: 3000 MG/M2, CYCLIC
     Route: 041
     Dates: start: 20091221, end: 20100113
  4. BRISTOPEN [Suspect]
     Indication: ANTIBIOTIC THERAPY
     Dosage: 500 MG, 6 TIMES PER DAY
     Route: 048
     Dates: start: 20100129, end: 20100206
  5. INNOHEP [Concomitant]
     Indication: JUGULAR VEIN THROMBOSIS
     Dosage: 0.8 ML DAILY
     Route: 058
     Dates: start: 20100128
  6. IXPRIM [Concomitant]
     Route: 059
  7. GURONSAN [Concomitant]
     Dosage: 1 DF, 1X/DAY
     Dates: start: 20100201
  8. CELESTENE [Concomitant]
     Indication: PREMEDICATION
     Dosage: 4 MG (2 MG, 2X/DAY) FROM D1 TO D3
  9. TARGOCID [Concomitant]
     Dosage: UNK
     Dates: start: 20100126, end: 20100128

REACTIONS (1)
  - CYTOLYTIC HEPATITIS [None]
